FAERS Safety Report 17534943 (Version 4)
Quarter: 2022Q2

REPORT INFORMATION
  Report Type: Report from Study
  Country: None (occurrence: US)
  Receive Date: 20200312
  Receipt Date: 20220411
  Transmission Date: 20220721
  Serious: Yes (Death)
  Sender: FDA-Public Use
  Company Number: US-AKCEA THERAPEUTICS-2019IS001697

PATIENT
  Age: 80 Year
  Sex: Male

DRUGS (2)
  1. TEGSEDI [Suspect]
     Active Substance: INOTERSEN SODIUM
     Indication: Hereditary neuropathic amyloidosis
     Route: 058
  2. DEVICE [Suspect]
     Active Substance: DEVICE

REACTIONS (6)
  - Death [Fatal]
  - Urinary tract infection [Unknown]
  - Urine protein/creatinine ratio increased [Unknown]
  - Cystitis [Not Recovered/Not Resolved]
  - Protein urine present [Unknown]
  - Thrombocytopenia [Unknown]

NARRATIVE: CASE EVENT DATE: 20200301
